FAERS Safety Report 15547764 (Version 3)
Quarter: 2020Q4

REPORT INFORMATION
  Report Type: Spontaneous
  Country: BR (occurrence: BR)
  Receive Date: 20181024
  Receipt Date: 20201211
  Transmission Date: 20210113
  Serious: Yes (Other)
  Sender: FDA-Public Use
  Company Number: BR-PFIZER INC-2018414496

PATIENT
  Age: 70 Year
  Sex: Female

DRUGS (4)
  1. LORAX (LORAZEPAM) [Suspect]
     Active Substance: LORAZEPAM
     Indication: STRESS
     Dosage: 2 MG, DAILY
  2. XALATAN [Concomitant]
     Active Substance: LATANOPROST
     Dosage: UNK
  3. CAPTOPRIL. [Concomitant]
     Active Substance: CAPTOPRIL
     Indication: ABDOMINAL PAIN UPPER
     Dosage: UNK
  4. ARADOIS [Concomitant]
     Active Substance: LOSARTAN POTASSIUM
     Indication: HYPERTENSION
     Dosage: UNK

REACTIONS (11)
  - Product use in unapproved indication [Unknown]
  - Oropharyngeal pain [Recovering/Resolving]
  - Drug ineffective [Not Recovered/Not Resolved]
  - Product use issue [Recovered/Resolved]
  - Feeling of despair [Recovered/Resolved]
  - Nasal congestion [Not Recovered/Not Resolved]
  - Weight increased [Recovered/Resolved]
  - Drug dependence [Recovered/Resolved]
  - Glaucoma [Not Recovered/Not Resolved]
  - Cataract [Recovered/Resolved]
  - Nasopharyngitis [Recovering/Resolving]

NARRATIVE: CASE EVENT DATE: 20181016
